FAERS Safety Report 18218267 (Version 1)
Quarter: 2020Q3

REPORT INFORMATION
  Report Type: Spontaneous
  Country: US (occurrence: US)
  Receive Date: 20200831
  Receipt Date: 20200831
  Transmission Date: 20201103
  Serious: Yes (Hospitalization)
  Sender: FDA-Public Use
  Company Number: None

PATIENT
  Age: 60 Year
  Sex: Male
  Weight: 59.87 kg

DRUGS (1)
  1. ENZALUTAMIDE (ENZALUTAMIDE 40MG CAP, ORAL) [Suspect]
     Active Substance: ENZALUTAMIDE
     Indication: PROSTATE CANCER
     Route: 048
     Dates: start: 20200408, end: 20200503

REACTIONS (2)
  - Generalised tonic-clonic seizure [None]
  - Metastases to central nervous system [None]

NARRATIVE: CASE EVENT DATE: 20200503
